FAERS Safety Report 23797178 (Version 5)
Quarter: 2024Q3

REPORT INFORMATION
  Report Type: Other
  Country: US (occurrence: US)
  Receive Date: 20240430
  Receipt Date: 20240723
  Transmission Date: 20241017
  Serious: Yes (Other)
  Sender: TRAVERE THERAPEUTICS
  Company Number: US-TRAVERE-2024TVT00310

PATIENT
  Age: 31 Year
  Sex: Male

DRUGS (8)
  1. FILSPARI [Suspect]
     Active Substance: SPARSENTAN
     Indication: IgA nephropathy
     Route: 048
  2. FILSPARI [Suspect]
     Active Substance: SPARSENTAN
     Route: 048
     Dates: start: 202403
  3. FILSPARI [Suspect]
     Active Substance: SPARSENTAN
     Dosage: DOSE REDUCED TO 200 MG
     Route: 048
     Dates: start: 20240423
  4. AMOXICILLIN [Concomitant]
     Active Substance: AMOXICILLIN
  5. CETIRIZINE [Concomitant]
     Active Substance: CETIRIZINE HYDROCHLORIDE
  6. LEVOTHYROXINE [Concomitant]
     Active Substance: LEVOTHYROXINE\LEVOTHYROXINE SODIUM
  7. OMEGA-3 ACIDS [Concomitant]
     Active Substance: OMEGA-3 FATTY ACIDS
  8. SERTRALINE [Concomitant]
     Active Substance: SERTRALINE HYDROCHLORIDE

REACTIONS (10)
  - Renal impairment [Unknown]
  - Blood creatine increased [Recovering/Resolving]
  - Pharyngitis streptococcal [Unknown]
  - Cough [Unknown]
  - Sneezing [Unknown]
  - Furuncle [Unknown]
  - Blood pressure decreased [Unknown]
  - Weight decreased [Unknown]
  - Wrong technique in product usage process [Unknown]
  - Somnolence [Unknown]

NARRATIVE: CASE EVENT DATE: 20240416
